FAERS Safety Report 23127598 (Version 1)
Quarter: 2023Q4

REPORT INFORMATION
  Report Type: Spontaneous
  Country: US (occurrence: None)
  Receive Date: 20231031
  Receipt Date: 20231031
  Transmission Date: 20240109
  Serious: No
  Sender: FDA-Public Use
  Company Number: 2023A218279

PATIENT
  Age: 16524 Day
  Sex: Female
  Weight: 81.6 kg

DRUGS (4)
  1. BYDUREON BCISE [Suspect]
     Active Substance: EXENATIDE
     Indication: Diabetes mellitus
     Route: 058
  2. BYDUREON BCISE [Suspect]
     Active Substance: EXENATIDE
     Indication: Diabetes mellitus management
     Route: 058
  3. BYDUREON BCISE [Suspect]
     Active Substance: EXENATIDE
     Indication: Diabetes mellitus
     Route: 058
     Dates: start: 20230925, end: 20230925
  4. BYDUREON BCISE [Suspect]
     Active Substance: EXENATIDE
     Indication: Diabetes mellitus management
     Route: 058
     Dates: start: 20230925, end: 20230925

REACTIONS (4)
  - Injection site haemorrhage [Recovered/Resolved]
  - Device malfunction [Unknown]
  - Drug dose omission by device [Unknown]
  - Device leakage [Unknown]

NARRATIVE: CASE EVENT DATE: 20230925
